FAERS Safety Report 5614568-0 (Version None)
Quarter: 2008Q1

REPORT INFORMATION
  Report Type: 
  Country: None (occurrence: None)
  Receive Date: 20080130
  Receipt Date: 20080118
  Transmission Date: 20080703
  Serious: Yes (Other)
  Sender: FDA-Public Use
  Company Number: 230644J08USA

PATIENT
  Age: 45 Year
  Sex: Female
  Weight: 58.0604 kg

DRUGS (7)
  1. REBIF [Suspect]
     Indication: MULTIPLE SCLEROSIS
     Dosage: 44 MCG, 3 IN 1 WEEKS, SUBCUTANEOUS
     Route: 058
     Dates: start: 20071016
  2. LEXAPRO [Concomitant]
  3. STOOL SOFTENER (CODUXATE SODIUM) [Concomitant]
  4. CALTRATE (CALCIUM CARBONATE) [Concomitant]
  5. ASPIRIN [Concomitant]
  6. ASCORBIC ACID [Concomitant]
  7. SOLU-MEDROL [Concomitant]

REACTIONS (2)
  - CONVULSION [None]
  - HEADACHE [None]
